FAERS Safety Report 9643107 (Version 1)
Quarter: 2013Q4

REPORT INFORMATION
  Report Type: Spontaneous
  Country: GB (occurrence: None)
  Receive Date: 20131022
  Receipt Date: 20131022
  Transmission Date: 20140711
  Serious: Yes (Other)
  Sender: FDA-Public Use
  Company Number: AUR-APL-2013-08573

PATIENT
  Age: 46 Year
  Sex: Female

DRUGS (3)
  1. RIBAVIRIN (RIBAVIRIN) [Suspect]
     Indication: HEPATITIS C
     Dosage: (2 IN 1 D)
     Route: 048
     Dates: start: 20130220
  2. INCIVO (TELAPREVIR) [Suspect]
     Indication: HEPATITIS C
     Dosage: (750 MG, 3 IN 1 D)
     Route: 048
     Dates: start: 20130220
  3. PEGINTERFERON ALFA-2B (PEGINTERFERON ALFA-2B) [Suspect]
     Indication: HEPATITIS C
     Dosage: (1 WK)
     Route: 058
     Dates: start: 20130220

REACTIONS (4)
  - Fatigue [None]
  - Nausea [None]
  - Mood swings [None]
  - Paranoia [None]
